FAERS Safety Report 5132697-5 (Version None)
Quarter: 2006Q4

REPORT INFORMATION
  Report Type: 
  Country: None (occurrence: None)
  Receive Date: 20061017
  Receipt Date: 20061004
  Transmission Date: 20070319
  Serious: Yes (Other)
  Sender: FDA-Public Use
  Company Number: TAP2006Q01694

PATIENT

DRUGS (2)
  1. HP- PAC  (LANSOPRAZOLE, CLARITHROMYCIN, AMOXICILLIN) [Suspect]
     Indication: HELICOBACTER INFECTION
  2. RISPERDAL [Concomitant]

REACTIONS (1)
  - PSYCHOTIC DISORDER [None]
